FAERS Safety Report 5225523-7 (Version None)
Quarter: 2007Q1

REPORT INFORMATION
  Report Type: 
  Country: None (occurrence: None)
  Receive Date: 20070131
  Receipt Date: 20070119
  Transmission Date: 20070707
  Serious: Yes (Hospitalization)
  Sender: FDA-Public Use
  Company Number: IT-PFIZER INC-2007005609

PATIENT
  Sex: Male

DRUGS (5)
  1. SU-011,248 [Suspect]
     Indication: RENAL CELL CARCINOMA STAGE UNSPECIFIED
     Route: 048
     Dates: start: 20060904, end: 20061002
  2. SU-011,248 [Suspect]
     Route: 048
     Dates: start: 20061023, end: 20061226
  3. RANITIDINE [Concomitant]
     Route: 048
     Dates: start: 20060901, end: 20061230
  4. TORADOL [Concomitant]
     Route: 048
     Dates: start: 20060901, end: 20061230
  5. LAEVOLAC ^ROCHE^ [Concomitant]
     Route: 048

REACTIONS (1)
  - COGNITIVE DISORDER [None]
